FAERS Safety Report 5653231-7 (Version None)
Quarter: 2008Q1

REPORT INFORMATION
  Report Type: 
  Country: None (occurrence: None)
  Receive Date: 20080131
  Receipt Date: 20071026
  Transmission Date: 20080703
  Serious: No
  Sender: FDA-Public Use
  Company Number: US200710006925

PATIENT
  Age: 45 Year
  Sex: Female
  Weight: 109.8 kg

DRUGS (7)
  1. BYETTA [Suspect]
     Indication: TYPE 2 DIABETES MELLITUS
     Dosage: 5 UG, 2/D, SUBCUTANEOUS ; 10 UG, 2/D, SUBCUTANEOUS
     Route: 058
     Dates: start: 20070801, end: 20070901
  2. BYETTA [Suspect]
     Indication: TYPE 2 DIABETES MELLITUS
     Dosage: 5 UG, 2/D, SUBCUTANEOUS ; 10 UG, 2/D, SUBCUTANEOUS
     Route: 058
     Dates: start: 20070901
  3. ACTOS (PIOGLITAZONE UNKNOWN FORMULATION) [Concomitant]
  4. METFORMIN HCL [Concomitant]
  5. EFFEXOR [Concomitant]
  6. NEXIUM [Concomitant]
  7. CYMBALTA [Concomitant]

REACTIONS (4)
  - DYSPEPSIA [None]
  - VIOLENCE-RELATED SYMPTOM [None]
  - WEIGHT DECREASED [None]
  - WEIGHT INCREASED [None]
